FAERS Safety Report 5512823-6 (Version None)
Quarter: 2007Q4

REPORT INFORMATION
  Report Type: 
  Country: None (occurrence: None)
  Receive Date: 20071108
  Receipt Date: 20071031
  Transmission Date: 20080405
  Serious: Yes (Hospitalization)
  Sender: FDA-Public Use
  Company Number: 2007-166208-NL

PATIENT
  Age: 19 Year
  Sex: Female

DRUGS (7)
  1. ETONOGESTREL [Suspect]
     Dosage: DF
     Dates: start: 20050101
  2. MIRTAZAPINE [Concomitant]
  3. LACTULOSE [Concomitant]
  4. ZOPICLONE [Concomitant]
  5. VITAMIN CAP [Concomitant]
  6. POTASSIUM CHLORIDE [Concomitant]
  7. DIAZEPAM [Concomitant]

REACTIONS (5)
  - ANXIETY [None]
  - EATING DISORDER [None]
  - IMPLANT SITE ERYTHEMA [None]
  - IMPLANT SITE PAIN [None]
  - UNDERWEIGHT [None]
